FAERS Safety Report 13567235 (Version 1)
Quarter: 2017Q2

REPORT INFORMATION
  Report Type: Spontaneous
  Country: US (occurrence: US)
  Receive Date: 20170522
  Receipt Date: 20170522
  Transmission Date: 20170830
  Serious: No
  Sender: FDA-Public Use
  Company Number: US-TEVA-757537ACC

PATIENT
  Sex: Male

DRUGS (2)
  1. MEXILETINE [Suspect]
     Active Substance: MEXILETINE
     Indication: MIGRAINE PROPHYLAXIS
  2. MEXILETINE [Suspect]
     Active Substance: MEXILETINE

REACTIONS (5)
  - Blood count abnormal [Unknown]
  - Decreased appetite [Unknown]
  - Chills [Unknown]
  - Pyrexia [Recovered/Resolved]
  - Drug ineffective [Unknown]
